FAERS Safety Report 5944496-2 (Version None)
Quarter: 2008Q4

REPORT INFORMATION
  Report Type: 
  Country: None (occurrence: None)
  Receive Date: 20081107
  Receipt Date: 20081029
  Transmission Date: 20090506
  Serious: Yes (Life-Threatening)
  Sender: FDA-Public Use
  Company Number: FR-SOLVAY-00208005181

PATIENT
  Age: 27984 Day
  Sex: Female

DRUGS (8)
  1. IMOVANE [Concomitant]
     Indication: DRUG USE FOR UNKNOWN INDICATION
     Dosage: DAILY DOSE:  UNKNOWN
     Route: 065
  2. COVERSYL [Suspect]
     Indication: DRUG USE FOR UNKNOWN INDICATION
     Dosage: DAILY DOSE: 2 MILLIGRAM(S)
     Route: 048
     Dates: end: 20081006
  3. DEDROGYL [Concomitant]
     Indication: DRUG USE FOR UNKNOWN INDICATION
     Dosage: DAILY DOSE:  UNKNOWN
     Route: 065
  4. CORDARONE [Suspect]
     Indication: DRUG USE FOR UNKNOWN INDICATION
     Dosage: DAILY DOSE: 200 MILLIGRAM(S), 5/7 DAYS
     Route: 048
     Dates: end: 20081006
  5. CARDENSIEL [Suspect]
     Indication: DRUG USE FOR UNKNOWN INDICATION
     Dosage: DAILY DOSE: 1.25 MILLIGRAM(S)
     Route: 048
     Dates: end: 20081006
  6. NOVORAPID [Concomitant]
     Indication: DRUG USE FOR UNKNOWN INDICATION
     Dosage: DAILY DOSE:  UNKNOWN
     Route: 065
  7. LASIX [Suspect]
     Indication: DRUG USE FOR UNKNOWN INDICATION
     Dosage: DAILY DOSE: 500 MILLIGRAM(S)
     Route: 048
     Dates: end: 20081006
  8. LANTUS [Concomitant]
     Indication: DRUG USE FOR UNKNOWN INDICATION
     Dosage: DAILY DOSE:  UNKNOWN
     Route: 065

REACTIONS (7)
  - ASTHENIA [None]
  - BRADYCARDIA [None]
  - CARDIAC FAILURE [None]
  - DIZZINESS [None]
  - GENERAL PHYSICAL HEALTH DETERIORATION [None]
  - OEDEMA PERIPHERAL [None]
  - RENAL FAILURE CHRONIC [None]
